FAERS Safety Report 5982110-0 (Version None)
Quarter: 2008Q4

REPORT INFORMATION
  Report Type: 
  Country: None (occurrence: None)
  Receive Date: 20081202
  Receipt Date: 20081117
  Transmission Date: 20090506
  Serious: Yes (Hospitalization)
  Sender: FDA-Public Use
  Company Number: 1000001763

PATIENT
  Age: 76 Year
  Sex: Male
  Weight: 55 kg

DRUGS (5)
  1. MEMANTINE HCL [Suspect]
     Indication: DEMENTIA ALZHEIMER'S TYPE
     Dosage: 20 MG (20 MG, 1 IN 1 D), ORAL
     Route: 048
     Dates: start: 20070127
  2. TIAPRIDE HYDROCHLORIDE [Suspect]
     Indication: DEMENTIA ALZHEIMER'S TYPE
     Dosage: 25 MG (25 MG, 1 IN 1 D), ORAL
     Route: 048
     Dates: start: 20080910
  3. MIANSERIN HYDROCHLORIDE [Suspect]
     Indication: DEMENTIA ALZHEIMER'S TYPE
     Dosage: 5 MG (5MG, 1 IN 1 D), ORAL
     Route: 048
     Dates: start: 20081015, end: 20081103
  4. SENNOSIDE [Concomitant]
  5. AZULENE [Suspect]

REACTIONS (9)
  - ABNORMAL BEHAVIOUR [None]
  - AGGRESSION [None]
  - APPETITE DISORDER [None]
  - CEREBROVASCULAR DISORDER [None]
  - DELIRIUM [None]
  - DEMENTIA ALZHEIMER'S TYPE [None]
  - PHYSICAL ABUSE [None]
  - SLEEP DISORDER [None]
  - VERBAL ABUSE [None]
